FAERS Safety Report 4740250-8 (Version None)
Quarter: 2005Q3

REPORT INFORMATION
  Report Type: 
  Country: None (occurrence: None)
  Receive Date: 20050810
  Receipt Date: 20050309
  Transmission Date: 20060218
  Serious: No
  Sender: FDA-Public Use
  Company Number: US-GLAXOSMITHKLINE-A0549082A

PATIENT
  Age: 29 Year
  Sex: Female

DRUGS (2)
  1. PAXIL [Suspect]
     Route: 048
  2. XANAX [Concomitant]

REACTIONS (5)
  - ANORGASMIA [None]
  - LOSS OF LIBIDO [None]
  - MENTAL DISORDER [None]
  - NAUSEA [None]
  - WEIGHT INCREASED [None]
